FAERS Safety Report 12466040 (Version 1)
Quarter: 2016Q2

REPORT INFORMATION
  Report Type: Spontaneous
  Country: US (occurrence: US)
  Receive Date: 20160614
  Receipt Date: 20160614
  Transmission Date: 20160815
  Serious: Yes (Other)
  Sender: FDA-Public Use
  Company Number: US-BAYER-2016-113813

PATIENT
  Sex: Female

DRUGS (1)
  1. COPPERTONE SPORT SPF 30 [Suspect]
     Active Substance: AVOBENZONE\HOMOSALATE\OCTISALATE\OCTOCRYLENE
     Dosage: UNK
     Dates: start: 201606

REACTIONS (4)
  - Skin exfoliation [None]
  - Chemical injury [None]
  - Facial pain [None]
  - Erythema [None]

NARRATIVE: CASE EVENT DATE: 20160605
